FAERS Safety Report 25923688 (Version 2)
Quarter: 2025Q4

REPORT INFORMATION
  Report Type: Spontaneous
  Country: BR (occurrence: BR)
  Receive Date: 20251015
  Receipt Date: 20251123
  Transmission Date: 20260117
  Serious: Yes (Hospitalization)
  Sender: ROCHE
  Company Number: BR-002147023-NVSC2025BR143243

PATIENT
  Age: 9 Year
  Sex: Female
  Weight: 51 kg

DRUGS (3)
  1. XOLAIR [Suspect]
     Active Substance: OMALIZUMAB
     Indication: Asthma
     Dosage: UNK(SOLUTION FOR INJECTION CT 1 SER PREEN C VD TRANS X 1 ML) (TWO APPLICATIONS EVERY 28 DAYS)
     Route: 065
  2. FERROUS BISGLYCINATE [Concomitant]
     Active Substance: FERROUS BISGLYCINATE
     Indication: Product used for unknown indication
     Dosage: 1 DOSAGE FORM, QD (GLICINATO FERRICO) (2 UNITS)
     Route: 050
  3. Unizinco [Concomitant]
     Indication: Product used for unknown indication
     Dosage: 1 DOSAGE FORM, QD (FOR 30 DAYS) (2 UNTS)
     Route: 065

REACTIONS (5)
  - Malaise [Unknown]
  - Alopecia [Not Recovered/Not Resolved]
  - Muscle spasms [Unknown]
  - Dengue fever [Unknown]
  - Anaemia [Unknown]
